FAERS Safety Report 7312802-2 (Version None)
Quarter: 2011Q1

REPORT INFORMATION
  Report Type: 
  Country: None (occurrence: None)
  Receive Date: 20110224
  Receipt Date: 20101229
  Transmission Date: 20110831
  Serious: No
  Sender: FDA-Public Use
  Company Number: US-MYLANLABS-2010S1023779

PATIENT
  Age: 56 Year
  Sex: Female

DRUGS (8)
  1. METOPROLOL TARTRATE [Suspect]
     Indication: HEART RATE IRREGULAR
     Route: 048
     Dates: start: 20000101, end: 20000101
  2. METOPROLOL TARTRATE [Suspect]
     Route: 048
     Dates: start: 20100901, end: 20101101
  3. LIPITOR [Concomitant]
  4. ALTACE [Concomitant]
  5. METOPROLOL TARTRATE [Suspect]
     Indication: BLOOD PRESSURE
     Route: 048
     Dates: start: 20000101, end: 20000101
  6. ACTONEL [Concomitant]
  7. METOPROLOL TARTRATE [Suspect]
     Route: 048
     Dates: start: 20100901, end: 20101101
  8. HYDROCHLOROTHIAZIDE [Concomitant]

REACTIONS (2)
  - DEPRESSION [None]
  - SUICIDAL IDEATION [None]
